FAERS Safety Report 12538063 (Version 1)
Quarter: 2016Q3

REPORT INFORMATION
  Report Type: Spontaneous
  Country: US (occurrence: US)
  Receive Date: 20160707
  Receipt Date: 20160707
  Transmission Date: 20161109
  Serious: No
  Sender: FDA-Public Use
  Company Number: US-GREER LABORATORIES, INC.-1054784

PATIENT
  Age: 76 Year
  Sex: Male
  Weight: 93.18 kg

DRUGS (2)
  1. INSECTS (WHOLE BODY), ANT, FIRE SOLENOPSIS INVICTA [Suspect]
     Active Substance: SOLENOPSIS INVICTA
     Indication: ALLERGY TO ARTHROPOD STING
     Route: 058
     Dates: start: 20160201
  2. STERILE DILUENT FOR ALLERGENIC EXTRACT (ALBUMIN (HUMAN)\PHENOL) [Suspect]
     Active Substance: ALBUMIN HUMAN\PHENOL
     Route: 058
     Dates: start: 20160201

REACTIONS (1)
  - Blood glucose increased [Unknown]
